FAERS Safety Report 6505482-7 (Version None)
Quarter: 2009Q4

REPORT INFORMATION
  Report Type: 
  Country: None (occurrence: None)
  Receive Date: 20091218
  Receipt Date: 20091208
  Transmission Date: 20100525
  Serious: Yes (Hospitalization)
  Sender: FDA-Public Use
  Company Number: DE-AMGEN-US379743

PATIENT
  Age: 54 Year
  Sex: Female

DRUGS (3)
  1. ENBREL [Suspect]
     Indication: RHEUMATOID ARTHRITIS
     Route: 058
     Dates: start: 20090226
  2. ENBREL [Suspect]
     Indication: POLYARTHRITIS
  3. ARAVA [Concomitant]
     Route: 048

REACTIONS (2)
  - IMPAIRED HEALING [None]
  - KNEE OPERATION [None]
